FAERS Safety Report 4369039-9 (Version None)
Quarter: 2004Q2

REPORT INFORMATION
  Report Type: 
  Country: None (occurrence: None)
  Receive Date: 20040527
  Receipt Date: 20040514
  Transmission Date: 20050107
  Serious: Yes (Death)
  Sender: FDA-Public Use
  Company Number: 2004033722

PATIENT
  Age: 78 Year
  Sex: Female

DRUGS (1)
  1. ATORVASTATIN (ATORVASTATIN) [Suspect]
     Indication: HYPERCHOLESTEROLAEMIA

REACTIONS (5)
  - ATHEROSCLEROSIS [None]
  - DEMENTIA ALZHEIMER'S TYPE [None]
  - MOBILITY DECREASED [None]
  - RHABDOMYOLYSIS [None]
  - SEPSIS [None]
